FAERS Safety Report 6359446-7 (Version None)
Quarter: 2009Q3

REPORT INFORMATION
  Report Type: 
  Country: None (occurrence: None)
  Receive Date: 20090917
  Receipt Date: 20090904
  Transmission Date: 20100115
  Serious: Yes (Hospitalization, Other)
  Sender: FDA-Public Use
  Company Number: US-PFIZER INC-2008075347

PATIENT
  Sex: Female
  Weight: 46.712 kg

DRUGS (10)
  1. CHANTIX [Suspect]
     Indication: SMOKING CESSATION THERAPY
     Dosage: 0.5 MG, 2X/DAY
     Route: 048
     Dates: start: 20080704
  2. CHANTIX [Suspect]
     Dosage: 1 MG, 2X/DAY
     Route: 048
     Dates: end: 20080830
  3. ALL OTHER THERAPEUTIC PRODUCTS [Suspect]
     Dosage: UNK
  4. LISINOPRIL AND HYDROCHLOROTHIAZIDE [Concomitant]
     Indication: BLOOD PRESSURE
  5. TAMOXIFEN CITRATE [Concomitant]
     Indication: BREAST CANCER
  6. ZANTAC [Concomitant]
     Indication: GASTROOESOPHAGEAL REFLUX DISEASE
  7. ALBUTEROL [Concomitant]
     Indication: BRONCHITIS CHRONIC
  8. ALBUTEROL [Concomitant]
     Indication: EMPHYSEMA
  9. VITAMIN E [Concomitant]
  10. ASCORBIC ACID [Concomitant]

REACTIONS (5)
  - CONSTIPATION [None]
  - INTESTINAL ISCHAEMIA [None]
  - INTRACRANIAL ANEURYSM [None]
  - RECTAL HAEMORRHAGE [None]
  - SURGERY [None]
